FAERS Safety Report 12880522 (Version 1)
Quarter: 2016Q4

REPORT INFORMATION
  Report Type: Spontaneous
  Country: US (occurrence: US)
  Receive Date: 20161025
  Receipt Date: 20161025
  Transmission Date: 20170207
  Serious: No
  Sender: FDA-Public Use
  Company Number: US-BAUSCH-BL-2016-013932

PATIENT
  Sex: Female
  Weight: 58.11 kg

DRUGS (2)
  1. ATIVAN [Suspect]
     Active Substance: LORAZEPAM
     Indication: NAUSEA
  2. ATIVAN [Suspect]
     Active Substance: LORAZEPAM
     Indication: FEELING OF RELAXATION
     Dosage: ONE-HALF TABLET DAILY AS NEEDED, 0.5MG
     Route: 048
     Dates: start: 2008

REACTIONS (2)
  - Drug ineffective for unapproved indication [Unknown]
  - Feeling jittery [Recovered/Resolved]

NARRATIVE: CASE EVENT DATE: 2016
